FAERS Safety Report 5037984-7 (Version None)
Quarter: 2006Q2

REPORT INFORMATION
  Report Type: 
  Country: None (occurrence: None)
  Receive Date: 20060616
  Receipt Date: 20050513
  Transmission Date: 20061013
  Serious: Yes (Other)
  Sender: FDA-Public Use
  Company Number: NUBN20050011

PATIENT
  Age: 22 Year
  Sex: Male

DRUGS (3)
  1. NUBAIN [Suspect]
     Dosage: IM
     Route: 030
     Dates: start: 20010101, end: 20040705
  2. OXYCONTIN [Suspect]
     Dosage: 0-160 MG DAILY INJ
     Dates: end: 20040705
  3. DIANOBOL [Suspect]
     Dosage: PO/IM

REACTIONS (3)
  - DRUG ABUSER [None]
  - DRUG DEPENDENCE [None]
  - DRUG TOLERANCE [None]
